FAERS Safety Report 17317883 (Version 3)
Quarter: 2020Q1

REPORT INFORMATION
  Report Type: Other
  Country: US (occurrence: US)
  Receive Date: 20200124
  Receipt Date: 20200224
  Transmission Date: 20200409
  Serious: Yes (Life-Threatening, Hospitalization, Other)
  Sender: FDA-Public Use
  Company Number: US-AMAG PHARMACEUTICALS, INC.-AMAG202000199

PATIENT
  Age: 0 Day
  Sex: Male
  Weight: 2.97 kg

DRUGS (1)
  1. MAKENA [Suspect]
     Active Substance: HYDROXYPROGESTERONE CAPROATE
     Indication: FOETAL EXPOSURE DURING PREGNANCY
     Route: 064
     Dates: start: 20190826, end: 20191212

REACTIONS (5)
  - Bradycardia neonatal [Unknown]
  - Cardiac arrest neonatal [Unknown]
  - Neonatal respiratory distress [Unknown]
  - Petechiae [Unknown]
  - Premature baby [Recovered/Resolved]

NARRATIVE: CASE EVENT DATE: 20191220
